FAERS Safety Report 8385539 (Version 7)
Quarter: 2012Q4

REPORT INFORMATION
  Report Type: 
  Country: US (occurrence: US)
  Receive Date: 20120202
  Receipt Date: 20120910
  Transmission Date: 20130627
  Serious: Yes (Death, Hospitalization, Other)
  Sender: FDA-Public Use
  Company Number: US-009507513-1202USA00045

PATIENT

DRUGS (3)
  1. FOSAMAX [Suspect]
     Indication: OSTEOPOROSIS
     Dosage: 70 mg, QW
     Route: 048
     Dates: start: 200504, end: 20110619
  2. FOSAMAX [Suspect]
     Dosage: 70 mg, UNK
     Dates: start: 20090119
  3. ALENDRONATE SODIUM [Suspect]
     Dosage: 70 mg, UNK
     Dates: start: 20081110

REACTIONS (23)
  - Femur fracture [Recovering/Resolving]
  - Dementia Alzheimer^s type [Fatal]
  - Pulmonary mass [Unknown]
  - Pulmonary granuloma [Unknown]
  - Pulmonary fibrosis [Unknown]
  - Urinary tract infection [Unknown]
  - Pneumonia [Unknown]
  - Uterine leiomyoma [Unknown]
  - Osteopenia [Unknown]
  - Fall [Unknown]
  - Hyperglycaemia [Unknown]
  - Vitamin B12 deficiency [Unknown]
  - Bacteraemia [Unknown]
  - Decreased appetite [Unknown]
  - Transient ischaemic attack [Unknown]
  - Lethargy [Unknown]
  - Anaemia [Unknown]
  - Hip fracture [Recovered/Resolved]
  - Insomnia [Unknown]
  - Hypertension [Unknown]
  - Multiple fractures [Unknown]
  - Herpes zoster [Unknown]
  - Constipation [Unknown]
